FAERS Safety Report 11727386 (Version 3)
Quarter: 2015Q4

REPORT INFORMATION
  Report Type: Spontaneous
  Country: US (occurrence: US)
  Receive Date: 20151112
  Receipt Date: 20151211
  Transmission Date: 20160304
  Serious: Yes (Hospitalization, Other)
  Sender: FDA-Public Use
  Company Number: US-GLAXOSMITHKLINE-US2015GSK161354

PATIENT
  Sex: Male

DRUGS (2)
  1. COUMADIN [Suspect]
     Active Substance: WARFARIN SODIUM
     Indication: PRODUCT USED FOR UNKNOWN INDICATION
  2. ADVAIR HFA [Suspect]
     Active Substance: FLUTICASONE PROPIONATE\SALMETEROL XINAFOATE
     Indication: CHRONIC OBSTRUCTIVE PULMONARY DISEASE
     Dosage: 250/50 MCG,UNK, U
     Route: 065

REACTIONS (7)
  - Blood pressure abnormal [Unknown]
  - Intentional product misuse [Unknown]
  - Drug dose omission [Unknown]
  - Pneumonia [Unknown]
  - Atrial fibrillation [Unknown]
  - Vomiting [Unknown]
  - Inability to afford medication [Unknown]
